FAERS Safety Report 6528790-2 (Version None)
Quarter: 2010Q1

REPORT INFORMATION
  Report Type: 
  Country: None (occurrence: None)
  Receive Date: 20100106
  Receipt Date: 20091231
  Transmission Date: 20100710
  Serious: Yes (Other)
  Sender: FDA-Public Use
  Company Number: CA-B.I. PHARMACEUTICALS,INC./RIDGEFIELD-2010-CN-00006CN

PATIENT
  Age: 54 Year
  Sex: Male

DRUGS (13)
  1. VIRAMUNE [Suspect]
     Route: 065
  2. ZERIT [Suspect]
     Route: 065
  3. ZIAGEN [Suspect]
     Route: 065
  4. ZIDOVUDINE [Suspect]
     Route: 065
  5. VIREAD [Suspect]
     Route: 065
  6. VIDEX EC [Suspect]
     Route: 065
  7. SAQUINAVIR [Suspect]
     Route: 065
  8. RITONAVIR [Suspect]
     Route: 065
  9. REYATAZ [Suspect]
     Route: 065
  10. LAMIVUDINE [Suspect]
     Route: 065
  11. KALETRA [Suspect]
     Route: 065
  12. FUZEON [Suspect]
     Route: 058
  13. CRIXIVAN [Suspect]
     Route: 065

REACTIONS (6)
  - DIPLOPIA [None]
  - DYSPHAGIA [None]
  - EYELID PTOSIS [None]
  - LIPODYSTROPHY ACQUIRED [None]
  - MITOCHONDRIAL TOXICITY [None]
  - PROGRESSIVE EXTERNAL OPHTHALMOPLEGIA [None]
